FAERS Safety Report 22189071 (Version 1)
Quarter: 2023Q2

REPORT INFORMATION
  Report Type: Other
  Country: PL (occurrence: PL)
  Receive Date: 20230410
  Receipt Date: 20230410
  Transmission Date: 20230722
  Serious: Yes (Other)
  Sender: FDA-Public Use
  Company Number: PL-ROCHE-3324308

PATIENT
  Age: 65 Year
  Sex: Male

DRUGS (7)
  1. RITUXIMAB [Suspect]
     Active Substance: RITUXIMAB
     Indication: Diffuse large B-cell lymphoma
     Dosage: UNK, CYCLIC (8 CYCLES)
     Route: 065
     Dates: start: 201004, end: 201101
  2. OXALIPLATIN [Suspect]
     Active Substance: OXALIPLATIN
     Indication: Diffuse large B-cell lymphoma
     Dosage: UNK, CYCLIC (4 CYCLES)
     Route: 065
  3. GEMCITABINE HYDROCHLORIDE [Suspect]
     Active Substance: GEMCITABINE HYDROCHLORIDE
     Indication: Diffuse large B-cell lymphoma
     Dosage: UNK, CYCLIC (4 CYCLES)
     Route: 065
  4. CYCLOPHOSPHAMIDE [Suspect]
     Active Substance: CYCLOPHOSPHAMIDE
     Indication: Diffuse large B-cell lymphoma
     Dosage: UNK, CYCLIC (8 CYCLES)
     Route: 065
     Dates: start: 201004, end: 201101
  5. DOXORUBICIN HYDROCHLORIDE [Suspect]
     Active Substance: DOXORUBICIN HYDROCHLORIDE
     Indication: Diffuse large B-cell lymphoma
     Dosage: UNK UNK, CYCLIC (8 CYCLES)
     Route: 065
     Dates: start: 201004, end: 201101
  6. PREDNISONE [Suspect]
     Active Substance: PREDNISONE
     Indication: Diffuse large B-cell lymphoma
     Dosage: UNK, CYCLIC (8 CYCLES)
     Route: 065
     Dates: start: 201004, end: 201101
  7. VINCRISTINE [Suspect]
     Active Substance: VINCRISTINE
     Indication: Diffuse large B-cell lymphoma
     Dosage: UNK, CYCLIC (8 CYCLES)
     Route: 065
     Dates: start: 201004, end: 201101

REACTIONS (7)
  - Thrombocytopenia [Recovered/Resolved]
  - Leukopenia [Unknown]
  - Night sweats [Unknown]
  - General physical health deterioration [Unknown]
  - Weight decreased [Unknown]
  - Off label use [Unknown]
  - Drug resistance [Unknown]
